FAERS Safety Report 8850775 (Version 2)
Quarter: 2014Q3

REPORT INFORMATION
  Report Type: Report from Study
  Country: US (occurrence: US)
  Receive Date: 20121019
  Receipt Date: 20140708
  Transmission Date: 20150326
  Serious: Yes (Other)
  Sender: FDA-Public Use
  Company Number: US-ELI_LILLY_AND_COMPANY-US201210003816

PATIENT
  Sex: Female

DRUGS (2)
  1. TERIPARATIDE [Suspect]
     Active Substance: TERIPARATIDE
     Indication: OSTEOPOROSIS
     Dosage: 20 UG, QD
     Route: 065
     Dates: end: 201104
  2. TERIPARATIDE [Suspect]
     Active Substance: TERIPARATIDE
     Dosage: 20 UG, QD
     Route: 065

REACTIONS (8)
  - Urticaria [Unknown]
  - Drug dose omission [Unknown]
  - Memory impairment [Unknown]
  - Loss of consciousness [Unknown]
  - Foot fracture [Unknown]
  - Injection site pain [Unknown]
  - Fatigue [Unknown]
  - Body height decreased [Unknown]
